FAERS Safety Report 9495938 (Version 3)
Quarter: 2013Q3

REPORT INFORMATION
  Report Type: Spontaneous
  Country: CZ (occurrence: CZ)
  Receive Date: 20130904
  Receipt Date: 20130912
  Transmission Date: 20140515
  Serious: Yes (Death, Other)
  Sender: FDA-Public Use
  Company Number: CZ-AMGEN-CZESP2013061525

PATIENT
  Age: 67 Year
  Sex: Male

DRUGS (3)
  1. ENBREL [Suspect]
     Indication: RHEUMATOID ARTHRITIS
     Dosage: 25 MG, 2X/WEEK
     Route: 058
     Dates: start: 20081003, end: 20090916
  2. ENBREL [Suspect]
     Dosage: UNK
     Route: 065
  3. AZATHIOPRINE [Concomitant]
     Indication: SCLERODERMA
     Dosage: 75 MG, 1X/DAY
     Dates: start: 20070829, end: 20090916

REACTIONS (6)
  - Neoplasm progression [Fatal]
  - Primary mediastinal large B-cell lymphoma [Fatal]
  - Non-Hodgkin^s lymphoma [Unknown]
  - Pleural effusion [Unknown]
  - Rheumatoid arthritis [Unknown]
  - Pneumonia [Unknown]
